FAERS Safety Report 4354358-2 (Version None)
Quarter: 2004Q2

REPORT INFORMATION
  Report Type: 
  Country: None (occurrence: None)
  Receive Date: 20040503
  Receipt Date: 20040422
  Transmission Date: 20050107
  Serious: Yes (Hospitalization, Other)
  Sender: FDA-Public Use
  Company Number: 200403639

PATIENT
  Age: 10 Year
  Sex: Male
  Weight: 34.927 kg

DRUGS (7)
  1. MOTRIN [Suspect]
     Indication: PAIN
     Dosage: 200 MG, PO, PM
     Route: 048
  2. MOTRIN [Suspect]
     Indication: PYREXIA
     Dosage: 200 MG, PO, PM
     Route: 048
  3. PHENERGAN [Concomitant]
  4. RANITIDINE [Concomitant]
  5. ADVAIR DISKUS 100/50 [Concomitant]
  6. ALBUTEROL [Concomitant]
  7. SINGULAIR [Concomitant]

REACTIONS (7)
  - ASTHMA [None]
  - CONCUSSION [None]
  - COUGH [None]
  - DYSPEPSIA [None]
  - GRAND MAL CONVULSION [None]
  - VIRAL INFECTION [None]
  - VOMITING [None]
